FAERS Safety Report 7382449-0 (Version None)
Quarter: 2011Q1

REPORT INFORMATION
  Report Type: 
  Country: None (occurrence: None)
  Receive Date: 20110329
  Receipt Date: 20110315
  Transmission Date: 20110831
  Serious: Yes (Hospitalization, Other)
  Sender: FDA-Public Use
  Company Number: FR-BAYER-2011-023180

PATIENT
  Sex: Female

DRUGS (1)
  1. MIRENA [Suspect]
     Dosage: 20 ?G, CONT
     Route: 015
     Dates: start: 20090501, end: 20110307

REACTIONS (2)
  - VAGINAL HAEMORRHAGE [None]
  - ENDOMETRIAL CANCER STAGE I [None]
